FAERS Safety Report 17894799 (Version 1)
Quarter: 2020Q2

REPORT INFORMATION
  Report Type: Spontaneous
  Country: US (occurrence: US)
  Receive Date: 20200612
  Receipt Date: 20200612
  Transmission Date: 20200714
  Serious: Yes (Other)
  Sender: FDA-Public Use
  Company Number: None

PATIENT
  Age: 51 Year
  Sex: Female
  Weight: 56.7 kg

DRUGS (2)
  1. ZOLOFT [Suspect]
     Active Substance: SERTRALINE HYDROCHLORIDE
  2. PAROXETINE HCL [Suspect]
     Active Substance: PAROXETINE HYDROCHLORIDE
     Indication: PREMENSTRUAL DYSPHORIC DISORDER
     Dosage: ?          OTHER DOSE:PAXIL 20 MG;?
     Route: 048
     Dates: start: 20110829

REACTIONS (4)
  - Anxiety [None]
  - Product substitution issue [None]
  - Panic attack [None]
  - Therapeutic response decreased [None]

NARRATIVE: CASE EVENT DATE: 20170201
